FAERS Safety Report 12701494 (Version 1)
Quarter: 2016Q3

REPORT INFORMATION
  Report Type: Spontaneous
  Country: US (occurrence: US)
  Receive Date: 20160831
  Receipt Date: 20160831
  Transmission Date: 20161109
  Serious: No
  Sender: FDA-Public Use
  Company Number: US-PFIZER INC-2016405531

PATIENT
  Age: 51 Year
  Sex: Male
  Weight: 122.45 kg

DRUGS (5)
  1. ZIPRASIDONE HCL [Suspect]
     Active Substance: ZIPRASIDONE HYDROCHLORIDE
     Indication: SCHIZOPHRENIA
     Dosage: 80 MG, 2X/DAY
     Route: 048
  2. KLONOPIN [Concomitant]
     Active Substance: CLONAZEPAM
     Indication: SLEEP DISORDER
     Dosage: UNK, AS NEEDED
     Route: 048
     Dates: start: 201601
  3. KLONOPIN [Concomitant]
     Active Substance: CLONAZEPAM
     Indication: SCHIZOPHRENIA
     Dosage: 1 MG, 1X/DAY (ONCE A NIGHT)
     Route: 048
     Dates: start: 200705
  4. KLONOPIN [Concomitant]
     Active Substance: CLONAZEPAM
     Indication: PARANOIA
  5. ZIPRASIDONE HCL [Suspect]
     Active Substance: ZIPRASIDONE HYDROCHLORIDE
     Dosage: 60 MG, ALTERNATE DAY
     Route: 048

REACTIONS (4)
  - Intentional product use issue [Unknown]
  - Drug intolerance [Unknown]
  - Breast pain [Recovering/Resolving]
  - Gynaecomastia [Recovering/Resolving]

NARRATIVE: CASE EVENT DATE: 20150101
